FAERS Safety Report 6346311-4 (Version None)
Quarter: 2009Q3

REPORT INFORMATION
  Report Type: 
  Country: None (occurrence: None)
  Receive Date: 20090909
  Receipt Date: 20090827
  Transmission Date: 20100115
  Serious: Yes (Hospitalization, Other)
  Sender: FDA-Public Use
  Company Number: US-PFIZER INC-2009260791

PATIENT
  Age: 68 Year
  Sex: Female

DRUGS (2)
  1. CEFAZOLIN [Suspect]
     Indication: BREAST INFECTION
     Dosage: 1 G, 3X/DAY
  2. LINEZOLID [Suspect]
     Indication: BREAST INFECTION
     Dosage: 600 MG, 2X/DAY
     Route: 042

REACTIONS (3)
  - ANAPHYLACTIC REACTION [None]
  - SWELLING FACE [None]
  - WOUND INFECTION PSEUDOMONAS [None]
